FAERS Safety Report 24628580 (Version 1)
Quarter: 2024Q4

REPORT INFORMATION
  Report Type: Report from Study
  Country: US (occurrence: US)
  Receive Date: 20241117
  Receipt Date: 20241117
  Transmission Date: 20250115
  Serious: Yes (Other)
  Sender: ABBVIE
  Company Number: US-ABBVIE-6001138

PATIENT
  Sex: Male

DRUGS (2)
  1. IMBRUVICA [Suspect]
     Active Substance: IBRUTINIB
     Indication: Chronic lymphocytic leukaemia
     Route: 048
     Dates: start: 20191107
  2. IMBRUVICA [Suspect]
     Active Substance: IBRUTINIB
     Indication: Chronic lymphocytic leukaemia
     Dosage: RESTARTED IN COUPLE WEEKS
     Route: 048

REACTIONS (5)
  - Richter^s syndrome [Not Recovered/Not Resolved]
  - Brain fog [Not Recovered/Not Resolved]
  - Stem cell transplant [Unknown]
  - Minimal residual disease [Unknown]
  - Off label use [Not Recovered/Not Resolved]
